FAERS Safety Report 22295031 (Version 2)
Quarter: 2023Q2

REPORT INFORMATION
  Report Type: Spontaneous
  Country: UY (occurrence: UY)
  Receive Date: 20230508
  Receipt Date: 20230627
  Transmission Date: 20230722
  Serious: No
  Sender: FDA-Public Use
  Company Number: UY-PFIZER INC-PV202300079850

PATIENT
  Age: 10 Year
  Sex: Female

DRUGS (1)
  1. GENOTROPIN [Suspect]
     Active Substance: SOMATROPIN
     Indication: Growth hormone deficiency
     Dosage: 0.6 TO 1 MG, 7 DAYS PER WEEK
     Dates: start: 20230426

REACTIONS (3)
  - Wrong technique in device usage process [Unknown]
  - Device delivery system issue [Unknown]
  - Poor quality device used [Unknown]
